FAERS Safety Report 6788033-1 (Version None)
Quarter: 2010Q2

REPORT INFORMATION
  Report Type: 
  Country: None (occurrence: None)
  Receive Date: 20100623
  Receipt Date: 20071204
  Transmission Date: 20101027
  Serious: No
  Sender: FDA-Public Use
  Company Number: US-PFIZER INC-2007102232

PATIENT
  Sex: Male

DRUGS (2)
  1. GEODON [Suspect]
     Indication: RESTLESSNESS
     Route: 042
  2. GEODON [Suspect]
     Indication: CONFUSIONAL STATE

REACTIONS (2)
  - BLOOD CREATINE ABNORMAL [None]
  - INCORRECT ROUTE OF DRUG ADMINISTRATION [None]
